FAERS Safety Report 10257282 (Version 1)
Quarter: 2014Q2

REPORT INFORMATION
  Report Type: Spontaneous
  Country: US (occurrence: None)
  Receive Date: 20140620
  Receipt Date: 20140620
  Transmission Date: 20141212
  Serious: Yes (Other)
  Sender: FDA-Public Use
  Company Number: INS201406-000106

PATIENT
  Age: 70 Year
  Sex: Female

DRUGS (3)
  1. SUBSYS SUBLINGUAL SPRAY (FENTANYL) [Suspect]
     Indication: OSTEOMYELITIS
  2. FENTORA [Suspect]
     Indication: ARTHRALGIA
  3. ACTIQ [Suspect]
     Indication: ARTHRALGIA

REACTIONS (1)
  - Suicidal ideation [None]
